FAERS Safety Report 8467846-4 (Version None)
Quarter: 2012Q2

REPORT INFORMATION
  Report Type: 
  Country: None (occurrence: None)
  Receive Date: 20120626
  Receipt Date: 20120621
  Transmission Date: 20120825
  Serious: Yes (Hospitalization, Disabling)
  Sender: FDA-Public Use
  Company Number: JP-GLAXOSMITHKLINE-B0800919A

PATIENT
  Sex: Male
  Weight: 58 kg

DRUGS (9)
  1. LAMIVUDINE (EPIVIR HBV) [Suspect]
     Indication: HEPATITIS B
     Dosage: 100MG PER DAY
     Route: 048
     Dates: start: 19960803, end: 20110818
  2. LAMIVUDINE (EPIVIR HBV) [Suspect]
     Dosage: 100MG TWICE PER DAY
     Route: 048
     Dates: start: 20110819
  3. CANDESARTAN CILEXETIL [Concomitant]
     Dosage: 12MG PER DAY
     Route: 048
  4. HEPSERA [Suspect]
     Indication: HEPATITIS B
     Dosage: 10MG PER DAY
     Route: 048
     Dates: start: 20041024, end: 20110818
  5. ALINAMIN-F [Concomitant]
     Route: 065
  6. FLIVASTATIN SODIUM [Concomitant]
     Dosage: 25MG PER DAY
     Route: 048
  7. VITAMIN B12 [Concomitant]
     Route: 065
  8. CERNILTON [Concomitant]
     Dosage: 63MG PER DAY
     Route: 048
  9. HEPSERA [Suspect]
     Dosage: 10MG TWICE PER DAY
     Route: 048
     Dates: start: 20110819

REACTIONS (7)
  - HYPOPHOSPHATAEMIA [None]
  - MUSCULAR WEAKNESS [None]
  - OSTEOMALACIA [None]
  - BLOOD CREATININE INCREASED [None]
  - PAIN IN EXTREMITY [None]
  - GAIT DISTURBANCE [None]
  - ASTHENIA [None]
